FAERS Safety Report 4487203-5 (Version None)
Quarter: 2004Q4

REPORT INFORMATION
  Report Type: 
  Country: None (occurrence: None)
  Receive Date: 20041022
  Receipt Date: 20041014
  Transmission Date: 20050328
  Serious: Yes (Life-Threatening, Hospitalization, Disabling)
  Sender: FDA-Public Use
  Company Number: 2004230150JP

PATIENT
  Age: 88 Year
  Sex: Male
  Weight: 68 kg

DRUGS (18)
  1. CABERGOLINE [Suspect]
     Indication: PARKINSON'S DISEASE
     Dosage: SEE IMAGE
     Route: 048
     Dates: start: 20040829, end: 20040831
  2. CABERGOLINE [Suspect]
     Indication: PARKINSON'S DISEASE
     Dosage: SEE IMAGE
     Route: 048
     Dates: start: 19991015
  3. CABERGOLINE [Suspect]
     Indication: PARKINSON'S DISEASE
     Dosage: SEE IMAGE
     Route: 048
     Dates: start: 19991029
  4. CABERGOLINE [Suspect]
     Indication: PARKINSON'S DISEASE
     Dosage: SEE IMAGE
     Route: 048
     Dates: start: 19991126
  5. CABERGOLINE [Suspect]
     Indication: PARKINSON'S DISEASE
     Dosage: SEE IMAGE
     Route: 048
     Dates: start: 19991210
  6. CABERGOLINE [Suspect]
     Indication: PARKINSON'S DISEASE
     Dosage: SEE IMAGE
     Route: 048
     Dates: start: 19991224
  7. CABERGOLINE [Suspect]
     Indication: PARKINSON'S DISEASE
     Dosage: SEE IMAGE
     Route: 048
     Dates: start: 20000114
  8. CABERGOLINE [Suspect]
     Indication: PARKINSON'S DISEASE
     Dosage: SEE IMAGE
     Route: 048
     Dates: start: 20000121
  9. CABERGOLINE [Suspect]
     Indication: PARKINSON'S DISEASE
     Dosage: SEE IMAGE
     Route: 048
     Dates: start: 20040821
  10. CABERGOLINE [Suspect]
     Indication: PARKINSON'S DISEASE
     Dosage: SEE IMAGE
     Route: 048
     Dates: start: 20040825
  11. CABERGOLINE [Suspect]
     Indication: PARKINSON'S DISEASE
     Dosage: SEE IMAGE
     Route: 048
     Dates: start: 20040827
  12. NEO DOPASTON [Concomitant]
  13. ZYLORIC [Concomitant]
  14. PERSANTIN [Concomitant]
  15. LENDORM [Concomitant]
  16. LASIX [Concomitant]
  17. ALDACTONE [Concomitant]
  18. KALIMATE (CALCIUM POLYSTYRENE SULFONATE) [Concomitant]

REACTIONS (10)
  - ABDOMINAL DISTENSION [None]
  - ASCITES [None]
  - CONGESTIVE CARDIOMYOPATHY [None]
  - OEDEMA PERIPHERAL [None]
  - PERICARDITIS CONSTRICTIVE [None]
  - PLEURAL EFFUSION [None]
  - RIGHT VENTRICULAR FAILURE [None]
  - SINUS ARRHYTHMIA [None]
  - SUPRAVENTRICULAR EXTRASYSTOLES [None]
  - WEIGHT DECREASED [None]
